FAERS Safety Report 4338302-X (Version None)
Quarter: 2004Q2

REPORT INFORMATION
  Report Type: 
  Country: None (occurrence: None)
  Receive Date: 20040409
  Receipt Date: 20040331
  Transmission Date: 20050107
  Serious: Yes (Hospitalization)
  Sender: FDA-Public Use
  Company Number: HQWYE787312MAR04

PATIENT
  Age: 63 Year
  Sex: Male

DRUGS (9)
  1. ANCARON (AMIODARONE) [Suspect]
     Indication: ARRHYTHMIA
     Dosage: 200 MG 1X PER 1 DAY ORAL
     Route: 048
     Dates: start: 20010101, end: 20030319
  2. SOTACOR   (SOTALO HYDROCHLORIDE) [Concomitant]
  3. LASIX [Concomitant]
  4. ALDACTONE [Concomitant]
  5. WARFARIN SODIUM [Concomitant]
  6. BAYASPIRNA (ACETYLSALICYLIC ACID) [Concomitant]
  7. ALOSTAL (ALLOPURINOL) [Concomitant]
  8. FAMOTIDINE [Concomitant]
  9. PRAVASTATIN [Concomitant]

REACTIONS (6)
  - BIOPSY LIVER ABNORMAL [None]
  - DECREASED APPETITE [None]
  - GAMMA-GLUTAMYLTRANSFERASE INCREASED [None]
  - HEPATIC FIBROSIS [None]
  - HEPATIC FUNCTION ABNORMAL [None]
  - HEPATIC STEATOSIS [None]
